FAERS Safety Report 13685743 (Version 1)
Quarter: 2017Q2

REPORT INFORMATION
  Report Type: Spontaneous
  Country: US (occurrence: US)
  Receive Date: 20170623
  Receipt Date: 20170623
  Transmission Date: 20170830
  Serious: Yes (Other)
  Sender: FDA-Public Use
  Company Number: US-ROCHE-1192835

PATIENT
  Sex: Female

DRUGS (2)
  1. CELLCEPT [Suspect]
     Active Substance: MYCOPHENOLATE MOFETIL\MYCOPHENOLATE MOFETIL HYDROCHLORIDE
     Indication: PRODUCT USED FOR UNKNOWN INDICATION
     Route: 065
  2. BENLYSTA [Suspect]
     Active Substance: BELIMUMAB
     Indication: SYSTEMIC LUPUS ERYTHEMATOSUS
     Dosage: DRUG DISCONTINUED
     Route: 041

REACTIONS (6)
  - Infection [Unknown]
  - Oral candidiasis [Unknown]
  - Oesophageal candidiasis [Unknown]
  - Cellulitis [Unknown]
  - Tooth abscess [Unknown]
  - Influenza [Unknown]

NARRATIVE: CASE EVENT DATE: 2012
